FAERS Safety Report 8165397-8 (Version None)
Quarter: 2012Q1

REPORT INFORMATION
  Report Type: 
  Country: None (occurrence: None)
  Receive Date: 20120103
  Receipt Date: 20110928
  Transmission Date: 20120608
  Serious: No
  Sender: FDA-Public Use
  Company Number: AE-2011-001909

PATIENT
  Age: 43 Year
  Sex: Female
  Weight: 58.9676 kg

DRUGS (4)
  1. INCIVEK [Suspect]
     Dosage: 2250 MG (750 MG, 3 IN 1 D), ORAL
     Dates: start: 20110903
  2. RIBAVIRIN [Concomitant]
  3. PEGASYS [Concomitant]
  4. METHADONE HCL [Concomitant]

REACTIONS (3)
  - HEADACHE [None]
  - EPISTAXIS [None]
  - ANAL HAEMORRHAGE [None]
